FAERS Safety Report 7718690-4 (Version None)
Quarter: 2011Q3

REPORT INFORMATION
  Report Type: 
  Country: None (occurrence: None)
  Receive Date: 20110830
  Receipt Date: 20110818
  Transmission Date: 20111222
  Serious: Yes (Hospitalization, Other)
  Sender: FDA-Public Use
  Company Number: US-ELI_LILLY_AND_COMPANY-US201104005068

PATIENT
  Sex: Female

DRUGS (10)
  1. LEVOTHYROXINE SODIUM [Concomitant]
  2. NORMODYNE [Concomitant]
  3. AMLODIPINE [Concomitant]
  4. OXYCODONE HCL [Concomitant]
  5. LANTUS [Concomitant]
  6. CYMBALTA [Suspect]
     Dosage: 60 MG, EACH EVENING
     Dates: end: 20110101
  7. WARFARIN SODIUM [Concomitant]
  8. CYMBALTA [Suspect]
     Indication: DEPRESSION
     Dosage: 60 MG, EACH MORNING
     Dates: end: 20110101
  9. FLUOXETINE [Concomitant]
  10. INSULIN BASAL ANALOG III (LY2605541) [Concomitant]

REACTIONS (17)
  - WOUND INFECTION STAPHYLOCOCCAL [None]
  - KNEE OPERATION [None]
  - HIP FRACTURE [None]
  - RENAL FAILURE [None]
  - HAEMOGLOBIN DECREASED [None]
  - NEPHROLITHIASIS [None]
  - SEPSIS [None]
  - ANXIETY [None]
  - FALL [None]
  - CRYING [None]
  - HOSPITALISATION [None]
  - FEMUR FRACTURE [None]
  - ABASIA [None]
  - GASTRIC BYPASS [None]
  - RESTLESS LEGS SYNDROME [None]
  - PAIN [None]
  - DEPRESSION [None]
